FAERS Safety Report 13649392 (Version 1)
Quarter: 2017Q2

REPORT INFORMATION
  Report Type: Spontaneous
  Country: FR (occurrence: FR)
  Receive Date: 20170613
  Receipt Date: 20170613
  Transmission Date: 20170830
  Serious: Yes (Other)
  Sender: FDA-Public Use
  Company Number: FR-UCBSA-2017022489

PATIENT
  Sex: Male

DRUGS (7)
  1. KEPPRA [Suspect]
     Active Substance: LEVETIRACETAM
     Indication: EPILEPSY
     Dosage: 1500 MG MORNING AND 1000 MG EVENING, 2X/DAY (BID)
     Route: 048
  2. PAROXETINE. [Suspect]
     Active Substance: PAROXETINE
     Indication: ANXIETY DISORDER
     Dosage: 20 MG DAILY
     Route: 048
     Dates: start: 2016
  3. DEPAKINE [Suspect]
     Active Substance: VALPROATE SODIUM
     Dosage: 2000 MG DAILY
  4. VALIUM [Suspect]
     Active Substance: DIAZEPAM
     Indication: MYOCLONIC EPILEPSY
     Dosage: STRENGTH 5 MG, AS NEEDED (PRN)
     Route: 048
  5. RAMIPRIL. [Suspect]
     Active Substance: RAMIPRIL
     Indication: HYPERTENSION
     Dosage: 2.5 MG DAILY
     Route: 048
     Dates: start: 20161012
  6. VALIUM [Suspect]
     Active Substance: DIAZEPAM
     Indication: EPILEPSY
     Dosage: STRENGTH 10 MG
     Route: 030
  7. DEPAKINE [Suspect]
     Active Substance: VALPROATE SODIUM
     Indication: EPILEPSY
     Dosage: 2500 MG DAILY
     Route: 048

REACTIONS (2)
  - Tremor [Unknown]
  - Dysgraphia [Unknown]

NARRATIVE: CASE EVENT DATE: 2013
